FAERS Safety Report 5844778-9 (Version None)
Quarter: 2008Q3

REPORT INFORMATION
  Report Type: 
  Country: None (occurrence: None)
  Receive Date: 20080812
  Receipt Date: 20080714
  Transmission Date: 20090109
  Serious: Yes (Life-Threatening, Hospitalization)
  Sender: FDA-Public Use
  Company Number: 2008001672

PATIENT
  Age: 80 Year
  Sex: Female

DRUGS (1)
  1. TARCEVA [Suspect]
     Indication: LUNG NEOPLASM MALIGNANT
     Dosage: (50 MG,QD), ORAL
     Route: 048

REACTIONS (4)
  - INCORRECT DOSE ADMINISTERED [None]
  - LETHARGY [None]
  - OVERDOSE [None]
  - SUICIDE ATTEMPT [None]
